FAERS Safety Report 9907115 (Version 4)
Quarter: 2014Q2

REPORT INFORMATION
  Report Type: Spontaneous
  Country: JP (occurrence: JP)
  Receive Date: 20140218
  Receipt Date: 20140411
  Transmission Date: 20141212
  Serious: Yes (Other)
  Sender: FDA-Public Use
  Company Number: JP-PFIZER INC-2014046302

PATIENT
  Age: 65 Year
  Sex: Female
  Weight: 55 kg

DRUGS (8)
  1. LYRICA [Suspect]
     Indication: NEURALGIA
     Dosage: 25 MG, 2X/DAY
     Route: 048
     Dates: start: 20131022, end: 20131118
  2. LYRICA [Suspect]
     Dosage: 25 MG, 3X/DAY
     Route: 048
     Dates: start: 20131119, end: 20140215
  3. NEUROTROPIN [Concomitant]
     Indication: PAIN
     Dosage: UNK
  4. PRORENAL [Concomitant]
     Dosage: UNK
     Route: 048
     Dates: start: 20130112
  5. VIVIANT [Concomitant]
     Dosage: UNK MG, UNK
     Route: 048
     Dates: start: 20110322
  6. CELECOX [Concomitant]
     Dosage: UNK
     Route: 048
     Dates: start: 20130112
  7. MUCOSTA [Concomitant]
     Dosage: UNK
     Route: 048
     Dates: start: 20130112
  8. RINPRAL [Concomitant]
     Dosage: UNK
     Route: 048
     Dates: start: 20130105

REACTIONS (1)
  - Deafness [Not Recovered/Not Resolved]
